FAERS Safety Report 17084009 (Version 1)
Quarter: 2019Q4

REPORT INFORMATION
  Report Type: Spontaneous
  Country: JP (occurrence: JP)
  Receive Date: 20191127
  Receipt Date: 20191127
  Transmission Date: 20200122
  Serious: Yes (Hospitalization, Other)
  Sender: FDA-Public Use
  Company Number: JP-BAUSCH-BL-2019-062316

PATIENT
  Age: 66 Year
  Sex: Female

DRUGS (3)
  1. PREDNISOLONE. [Suspect]
     Active Substance: PREDNISOLONE
     Indication: RHEUMATOID ARTHRITIS
     Dosage: 7.5-15 MG/D FOR 7 YEARS
     Route: 048
  2. ALENDRONIC ACID [Suspect]
     Active Substance: ALENDRONIC ACID
     Indication: OSTEOPOROSIS PROPHYLAXIS
     Route: 065
  3. PREDNISOLONE. [Suspect]
     Active Substance: PREDNISOLONE
     Dosage: 7.5-15 MG/D FOR 7 YEARS
     Route: 048

REACTIONS (1)
  - Osteonecrosis [Recovered/Resolved]
